FAERS Safety Report 14245666 (Version 1)
Quarter: 2017Q4

REPORT INFORMATION
  Report Type: Spontaneous
  Country: TR (occurrence: TR)
  Receive Date: 20171204
  Receipt Date: 20171204
  Transmission Date: 20180321
  Serious: Yes (Other)
  Sender: FDA-Public Use
  Company Number: TR-SHIRE-TR201730818

PATIENT

DRUGS (1)
  1. KIOVIG [Suspect]
     Active Substance: HUMAN IMMUNOGLOBULIN G
     Indication: IMMUNODEFICIENCY
     Dosage: 10 G, UNK
     Route: 058
     Dates: start: 20171114, end: 20171114

REACTIONS (3)
  - Headache [Recovering/Resolving]
  - Infusion site erythema [Recovering/Resolving]
  - Infusion site swelling [Recovering/Resolving]

NARRATIVE: CASE EVENT DATE: 20171114
